FAERS Safety Report 7625925-5 (Version None)
Quarter: 2011Q3

REPORT INFORMATION
  Report Type: 
  Country: None (occurrence: None)
  Receive Date: 20110721
  Receipt Date: 20110721
  Transmission Date: 20111222
  Serious: Yes (Life-Threatening)
  Sender: FDA-Public Use
  Company Number: None

PATIENT
  Sex: Female
  Weight: 92 kg

DRUGS (3)
  1. AMLODIPINE [Concomitant]
  2. ASPIRIN [Interacting]
  3. LISINOPRIL [Suspect]

REACTIONS (1)
  - ANGIOEDEMA [None]
